FAERS Safety Report 8997973 (Version 2)
Quarter: 2013Q1

REPORT INFORMATION
  Report Type: Report from Study
  Country: JP (occurrence: JP)
  Receive Date: 20130104
  Receipt Date: 20130207
  Transmission Date: 20140127
  Serious: Yes (Other)
  Sender: FDA-Public Use
  Company Number: JP-ROCHE-1175035

PATIENT
  Sex: Male
  Weight: 84 kg

DRUGS (20)
  1. METHOXY POLYETHYLENE GLYCOL-EPOETIN BETA [Suspect]
     Indication: NEPHROGENIC ANAEMIA
     Route: 042
     Dates: start: 20110916, end: 20111014
  2. METHOXY POLYETHYLENE GLYCOL-EPOETIN BETA [Suspect]
     Indication: NEPHROGENIC ANAEMIA
     Route: 042
     Dates: start: 20111118, end: 20111118
  3. METHOXY POLYETHYLENE GLYCOL-EPOETIN BETA [Suspect]
     Indication: NEPHROGENIC ANAEMIA
     Route: 042
     Dates: start: 20111209, end: 20120107
  4. METHOXY POLYETHYLENE GLYCOL-EPOETIN BETA [Suspect]
     Indication: NEPHROGENIC ANAEMIA
     Route: 042
     Dates: start: 20120204, end: 20120526
  5. DIPYRIDAMOLE [Concomitant]
     Route: 048
  6. NICORANDIL [Concomitant]
     Route: 048
  7. FUROSEMIDE [Concomitant]
     Route: 048
  8. VILDAGLIPTIN [Concomitant]
     Indication: DIABETES MELLITUS
     Route: 048
     Dates: start: 20111210
  9. GLIMICRON [Concomitant]
     Indication: DIABETES MELLITUS
     Route: 048
     Dates: start: 20111210
  10. MICARDIS [Concomitant]
     Indication: HYPERTENSION
     Route: 048
  11. WARFARIN POTASSIUM [Concomitant]
     Route: 048
  12. CALBLOCK [Concomitant]
     Indication: HYPERTENSION
     Route: 048
  13. RASILEZ [Concomitant]
     Indication: HYPERTENSION
     Route: 048
  14. FOSRENOL [Concomitant]
     Route: 048
  15. CALTAN [Concomitant]
     Route: 048
  16. DOXAZOSIN MESILATE [Concomitant]
     Indication: HYPERTENSION
     Route: 048
  17. SENNOSIDE [Concomitant]
     Route: 048
  18. RENAGEL [Concomitant]
     Route: 048
  19. OXAROL [Concomitant]
     Route: 042
  20. FESIN [Concomitant]
     Route: 042

REACTIONS (1)
  - Anaemia [Unknown]
